FAERS Safety Report 8818395 (Version 1)
Quarter: 2012Q4

REPORT INFORMATION
  Report Type: 
  Country: IT (occurrence: IT)
  Receive Date: 20121001
  Receipt Date: 20121001
  Transmission Date: 20130627
  Serious: Yes (Hospitalization)
  Sender: FDA-Public Use
  Company Number: IT-ROCHE-1135004

PATIENT
  Age: 47 Year
  Sex: Female

DRUGS (5)
  1. HERCEPTIN [Suspect]
     Indication: BREAST CANCER
     Route: 042
     Dates: start: 20120717, end: 20120724
  2. TAXOTERE [Suspect]
     Indication: BREAST CANCER
     Route: 065
     Dates: start: 20120717, end: 20120724
  3. ONDANSETRON [Concomitant]
     Indication: BREAST CANCER
     Route: 065
  4. TACHIPIRINA [Concomitant]
     Indication: BREAST CANCER
     Route: 048
  5. TORADOL [Concomitant]
     Indication: BREAST CANCER
     Route: 048

REACTIONS (1)
  - Toxic epidermal necrolysis [Recovered/Resolved]
